FAERS Safety Report 8869445 (Version 1)
Quarter: 2012Q4

REPORT INFORMATION
  Report Type: Spontaneous
  Country: GB (occurrence: None)
  Receive Date: 20121024
  Receipt Date: 20121024
  Transmission Date: 20130627
  Serious: Yes (Other)
  Sender: FDA-Public Use
  Company Number: GB-1194768

PATIENT
  Age: 30 Year
  Sex: Male

DRUGS (5)
  1. DEXAMETHASONE [Suspect]
  2. AZITHROMYCIN [Suspect]
     Route: 048
  3. PREDNISOLONE [Suspect]
     Route: 048
  4. AZOPT [Concomitant]
  5. ATROPINE [Concomitant]

REACTIONS (5)
  - Retinal artery occlusion [None]
  - Necrotising retinitis [None]
  - Condition aggravated [None]
  - Vitritis [None]
  - Drug ineffective [None]
